FAERS Safety Report 5896802-5 (Version None)
Quarter: 2008Q3

REPORT INFORMATION
  Report Type: 
  Country: None (occurrence: None)
  Receive Date: 20080924
  Receipt Date: 20080626
  Transmission Date: 20090109
  Serious: Yes (Other)
  Sender: FDA-Public Use
  Company Number: US-ASTRAZENECA-2007UW27337

PATIENT
  Age: 451 Month
  Sex: Female
  Weight: 154.2 kg

DRUGS (5)
  1. SEROQUEL [Suspect]
     Indication: BIPOLAR DISORDER
     Dosage: VARIOUS DOSES INCLUDING BUT NOT LIMITED TO 200 MG, 300 MG, 600 MG, AND 900 MG
     Route: 048
     Dates: start: 19980101, end: 20070301
  2. ABILIFY [Concomitant]
     Dates: start: 20071107
  3. HALDOL [Concomitant]
     Dates: start: 19900101
  4. TRILEPTAL [Concomitant]
     Dates: start: 20050101
  5. TOPROL-XL [Concomitant]
     Dates: start: 20050101

REACTIONS (6)
  - BLOOD CHOLESTEROL INCREASED [None]
  - CARDIAC FAILURE CONGESTIVE [None]
  - CHEST PAIN [None]
  - DIABETES MELLITUS [None]
  - OSTEOARTHRITIS [None]
  - SLEEP APNOEA SYNDROME [None]
